FAERS Safety Report 6735623-8 (Version None)
Quarter: 2010Q2

REPORT INFORMATION
  Report Type: 
  Country: None (occurrence: None)
  Receive Date: 20100521
  Receipt Date: 20100518
  Transmission Date: 20101027
  Serious: Yes (Death)
  Sender: FDA-Public Use
  Company Number: JP-GENZYME-POMP-1000946

PATIENT
  Sex: Female
  Weight: 25 kg

DRUGS (1)
  1. MYOZYME [Suspect]
     Indication: GLYCOGEN STORAGE DISEASE TYPE II
     Dosage: UNK UNK, UNK
     Dates: start: 20080402

REACTIONS (2)
  - PNEUMONIA [None]
  - RESPIRATORY FAILURE [None]
